FAERS Safety Report 7948383-X (Version None)
Quarter: 2011Q4

REPORT INFORMATION
  Report Type: 
  Country: None (occurrence: None)
  Receive Date: 20111130
  Receipt Date: 20111124
  Transmission Date: 20120403
  Serious: Yes (Hospitalization)
  Sender: FDA-Public Use
  Company Number: NL-AMGEN-NLDSP2011062294

PATIENT
  Age: 77 Year
  Sex: Female

DRUGS (2)
  1. NEULASTA [Suspect]
     Indication: CHEMOTHERAPY
     Dosage: 6 MG, UNK
  2. ANTINEOPLASTIC AGENTS [Concomitant]

REACTIONS (6)
  - SEPSIS [None]
  - DYSPNOEA [None]
  - MALAISE [None]
  - MYALGIA [None]
  - PYREXIA [None]
  - PALPITATIONS [None]
